FAERS Safety Report 8833988 (Version 1)
Quarter: 2012Q4

REPORT INFORMATION
  Report Type: Spontaneous
  Country: US (occurrence: None)
  Receive Date: 20121010
  Receipt Date: 20121010
  Transmission Date: 20130627
  Serious: Yes (Other)
  Sender: FDA-Public Use
  Company Number: None

PATIENT
  Age: 42 Year
  Sex: Female
  Weight: 69.85 kg

DRUGS (1)
  1. MIRENA IUD [Suspect]
     Indication: CONTRACEPTION
     Dates: start: 20090519, end: 20090626

REACTIONS (7)
  - Uterine perforation [None]
  - Urinary tract infection [None]
  - Anxiety [None]
  - Pain [None]
  - Mental impairment [None]
  - Economic problem [None]
  - Device issue [None]
